FAERS Safety Report 17605813 (Version 1)
Quarter: 2020Q1

REPORT INFORMATION
  Report Type: Spontaneous
  Country: US (occurrence: US)
  Receive Date: 20200331
  Receipt Date: 20200331
  Transmission Date: 20200409
  Serious: Yes (Other)
  Sender: FDA-Public Use
  Company Number: US-TEVA-2020-US-1213962

PATIENT
  Age: 60 Year
  Sex: Male

DRUGS (11)
  1. HALOPERIDOL. [Concomitant]
     Active Substance: HALOPERIDOL
     Indication: HALLUCINATION
     Route: 065
  2. AMANTADINE. [Suspect]
     Active Substance: AMANTADINE HYDROCHLORIDE
     Indication: ADJUVANT THERAPY
     Dosage: INITIAL DOSE NOT STATED
     Route: 065
  3. LORAZEPAM. [Concomitant]
     Active Substance: LORAZEPAM
     Indication: CATATONIA
     Dosage: FOUR TIMES DAILY
     Route: 048
  4. PREDNISONE. [Concomitant]
     Active Substance: PREDNISONE
     Indication: GOUT
     Dosage: 2 TRIALS OF PREDNISONE
     Route: 065
  5. MEMANTINE. [Suspect]
     Active Substance: MEMANTINE
     Indication: CATATONIA
     Dosage: TITRATED UP TO 10MG
     Route: 048
  6. SERTRALINE [Concomitant]
     Active Substance: SERTRALINE HYDROCHLORIDE
     Indication: DEPRESSION
     Dosage: TITRATED TO 200 MG DAILY
     Route: 065
  7. LORAZEPAM. [Concomitant]
     Active Substance: LORAZEPAM
     Indication: CATATONIA
     Dosage: THREE TIMES DAILY
     Route: 048
  8. AMANTADINE. [Suspect]
     Active Substance: AMANTADINE HYDROCHLORIDE
     Dosage: AMANTADINE DOSE WAS TAPERED
     Route: 065
  9. LORAZEPAM. [Concomitant]
     Active Substance: LORAZEPAM
     Indication: CATATONIA
     Dosage: TAPERED IN THREE DIVIDED DOSES
     Route: 048
  10. OLANZAPINE. [Suspect]
     Active Substance: OLANZAPINE
     Indication: HALLUCINATION
     Dosage: 2.5 MILLIGRAM DAILY; AT NIGHT
     Route: 065
  11. PREDNISONE. [Concomitant]
     Active Substance: PREDNISONE
     Indication: PAIN

REACTIONS (5)
  - Sedation [Unknown]
  - Hallucination [Recovering/Resolving]
  - Paranoia [Recovering/Resolving]
  - Illusion [Recovering/Resolving]
  - Rebound effect [Recovering/Resolving]
